FAERS Safety Report 14563028 (Version 1)
Quarter: 2018Q1

REPORT INFORMATION
  Report Type: Spontaneous
  Country: US (occurrence: US)
  Receive Date: 20180221
  Receipt Date: 20180221
  Transmission Date: 20180509
  Serious: Yes (Other)
  Sender: FDA-Public Use
  Company Number: None

PATIENT
  Age: 3 Year

DRUGS (2)
  1. POLYETHYLENE GLYCOL [Suspect]
     Active Substance: POLYETHYLENE GLYCOLS
  2. CEFDINIR. [Suspect]
     Active Substance: CEFDINIR

REACTIONS (6)
  - Peripheral swelling [None]
  - Affective disorder [None]
  - Swelling face [None]
  - Urticaria [None]
  - Contusion [None]
  - Crying [None]

NARRATIVE: CASE EVENT DATE: 20171128
